FAERS Safety Report 21239678 (Version 2)
Quarter: 2022Q3

REPORT INFORMATION
  Report Type: Spontaneous
  Country: IT (occurrence: IT)
  Receive Date: 20220822
  Receipt Date: 20220825
  Transmission Date: 20221026
  Serious: Yes (Hospitalization, Other)
  Sender: FDA-Public Use
  Company Number: IT-GLAXOSMITHKLINE-IT2022GSK121666

PATIENT

DRUGS (15)
  1. SUMATRIPTAN SUCCINATE [Suspect]
     Active Substance: SUMATRIPTAN SUCCINATE
     Indication: Migraine
     Dosage: 6 MG, 1D
     Route: 058
  2. SUMATRIPTAN SUCCINATE [Suspect]
     Active Substance: SUMATRIPTAN SUCCINATE
     Dosage: 6 MG
     Route: 058
     Dates: start: 20190829
  3. ERENUMAB [Suspect]
     Active Substance: ERENUMAB
     Indication: Migraine prophylaxis
     Dosage: 70 MG
     Route: 058
     Dates: start: 201903
  4. ERENUMAB [Suspect]
     Active Substance: ERENUMAB
     Dosage: 140 MG, INCREASED
     Route: 058
     Dates: start: 201903
  5. ALMOTRIPTAN [Suspect]
     Active Substance: ALMOTRIPTAN
     Indication: Migraine
     Dosage: 12.5 MG, 1D
  6. PIZOTYLINE [Concomitant]
     Active Substance: PIZOTYLINE
     Indication: Migraine prophylaxis
     Dosage: 0.5 MG
  7. PIZOTYLINE [Concomitant]
     Active Substance: PIZOTYLINE
     Dosage: 0.5 MG
  8. AMITRIPTYLINE + CHLORDIAZEPOXIDE [Concomitant]
     Indication: Migraine prophylaxis
     Dosage: UNK
  9. AMITRIPTYLINE + CHLORDIAZEPOXIDE [Concomitant]
     Dosage: UNK
  10. CITALOPRAM [Concomitant]
     Active Substance: CITALOPRAM HYDROBROMIDE
     Indication: Migraine prophylaxis
     Dosage: 10 MG, 1D
  11. CITALOPRAM [Concomitant]
     Active Substance: CITALOPRAM HYDROBROMIDE
     Dosage: 10 MG, 1D
  12. ASPIRIN [Concomitant]
     Active Substance: ASPIRIN
     Indication: Product used for unknown indication
     Dosage: 100 MG, 1D
  13. OMEPRAZOLE [Concomitant]
     Active Substance: OMEPRAZOLE
     Indication: Product used for unknown indication
     Dosage: 20 MG, 1D
  14. CANDESARTAN [Concomitant]
     Active Substance: CANDESARTAN
     Indication: Product used for unknown indication
     Dosage: 16 MG, 1D
  15. ROSUVASTATIN [Concomitant]
     Active Substance: ROSUVASTATIN
     Indication: Product used for unknown indication
     Dosage: 20 MG, 1D

REACTIONS (9)
  - Acute myocardial infarction [Unknown]
  - Coronary artery occlusion [Unknown]
  - Overdose [Unknown]
  - Chest pain [Unknown]
  - Pain [Unknown]
  - Atrial fibrillation [Unknown]
  - Arteriospasm coronary [Unknown]
  - Coronary artery thrombosis [Unknown]
  - Ventricular hypokinesia [Unknown]
